FAERS Safety Report 8183265-2 (Version None)
Quarter: 2012Q1

REPORT INFORMATION
  Report Type: 
  Country: None (occurrence: None)
  Receive Date: 20120305
  Receipt Date: 20120227
  Transmission Date: 20120608
  Serious: Yes (Disabling, Other)
  Sender: FDA-Public Use
  Company Number: MX-SANOFI-AVENTIS-2012SA013164

PATIENT
  Age: 60 Year
  Sex: Male
  Weight: 87 kg

DRUGS (5)
  1. ATORVASTATIN [Concomitant]
     Route: 048
     Dates: start: 20100101
  2. ASPIRIN [Concomitant]
     Route: 048
     Dates: start: 20100101
  3. INSULIN GLARGINE [Suspect]
     Indication: TYPE 2 DIABETES MELLITUS
     Route: 058
     Dates: start: 20050101
  4. BEDOYECTA [Concomitant]
     Route: 048
     Dates: start: 20090101
  5. MICARDIS HCT [Concomitant]
     Route: 048
     Dates: start: 20040101

REACTIONS (1)
  - BLINDNESS [None]
